FAERS Safety Report 14316024 (Version 1)
Quarter: 2017Q4

REPORT INFORMATION
  Report Type: Report from Study
  Country: None (occurrence: DE)
  Receive Date: 20171221
  Receipt Date: 20171221
  Transmission Date: 20180321
  Serious: Yes (Hospitalization)
  Sender: FDA-Public Use
  Company Number: DE-ABBVIE-17K-062-2164821-00

PATIENT
  Sex: Male

DRUGS (10)
  1. MADOPAR DEPOT [Concomitant]
     Active Substance: BENSERAZIDE HYDROCHLORIDE\LEVODOPA
     Indication: PRODUCT USED FOR UNKNOWN INDICATION
  2. MADOPAR LT [Concomitant]
     Active Substance: BENSERAZIDE HYDROCHLORIDE\LEVODOPA
     Indication: PRODUCT USED FOR UNKNOWN INDICATION
  3. CLONAZEPAM. [Concomitant]
     Active Substance: CLONAZEPAM
     Indication: PRODUCT USED FOR UNKNOWN INDICATION
  4. DUODOPA [Suspect]
     Active Substance: CARBIDOPA\LEVODOPA
     Dosage: MD 7.0 ML / CRD 2.1 ML/H / ED 1.5 ML
     Route: 050
     Dates: start: 2017
  5. ONGENTYS [Concomitant]
     Active Substance: OPICAPONE
     Indication: PRODUCT USED FOR UNKNOWN INDICATION
  6. SAFINAMIDE [Concomitant]
     Active Substance: SAFINAMIDE
     Indication: PRODUCT USED FOR UNKNOWN INDICATION
  7. DUODOPA [Suspect]
     Active Substance: CARBIDOPA\LEVODOPA
     Indication: PARKINSON^S DISEASE
     Dosage: MD 7.0 ML; CRD 2.0 ML/H; ED 1.3 ML
     Route: 050
     Dates: start: 20170327, end: 2017
  8. RIVOTRIL [Concomitant]
     Active Substance: CLONAZEPAM
     Indication: PRODUCT USED FOR UNKNOWN INDICATION
     Dosage: FREQUENCY: 0.5  FREQUENCY TIME: 1 DAYS
  9. LEVODOPA BENSERAZIDE [Concomitant]
     Active Substance: BENSERAZIDE\LEVODOPA
     Indication: PRODUCT USED FOR UNKNOWN INDICATION
     Dosage: 100/25ML RET., NOCTE
  10. PREGABALIN. [Concomitant]
     Active Substance: PREGABALIN
     Indication: PRODUCT USED FOR UNKNOWN INDICATION

REACTIONS (3)
  - Pain in extremity [Recovered/Resolved]
  - Akinesia [Not Recovered/Not Resolved]
  - Device issue [Unknown]

NARRATIVE: CASE EVENT DATE: 2017
